FAERS Safety Report 6231006-8 (Version None)
Quarter: 2009Q2

REPORT INFORMATION
  Report Type: 
  Country: None (occurrence: None)
  Receive Date: 20090616
  Receipt Date: 20090609
  Transmission Date: 20091009
  Serious: Yes (Other)
  Sender: FDA-Public Use
  Company Number: US-ROCHE-624534

PATIENT
  Sex: Female
  Weight: 67.6 kg

DRUGS (5)
  1. BONIVA [Suspect]
     Indication: OSTEOPOROSIS
     Route: 048
     Dates: start: 20090219, end: 20090403
  2. CELEBREX [Concomitant]
     Route: 048
     Dates: start: 20060925
  3. ESTRADIOL [Concomitant]
     Dosage: DOSE: 1/2 APPLICATION, FREQUENCY: 1-2 EVERY WEEK.
     Route: 067
     Dates: start: 20081031
  4. MULTI-VITAMIN [Concomitant]
     Dosage: FREQUENCY: DAILY
     Route: 048
  5. CALTRATE [Concomitant]
     Indication: OSTEOPOROSIS
     Route: 048
     Dates: start: 20060505

REACTIONS (3)
  - DYSPEPSIA [None]
  - NAUSEA [None]
  - PAIN IN JAW [None]
